FAERS Safety Report 8605141-0 (Version None)
Quarter: 2012Q3

REPORT INFORMATION
  Report Type: 
  Country: None (occurrence: None)
  Receive Date: 20120820
  Receipt Date: 20120809
  Transmission Date: 20120928
  Serious: Yes (Hospitalization)
  Sender: FDA-Public Use
  Company Number: US-BAYER-2011-032089

PATIENT
  Age: 19 Year
  Sex: Female

DRUGS (11)
  1. ZOFRAN [Concomitant]
  2. LORTAB [Concomitant]
     Indication: PAIN
  3. YAZ [Suspect]
     Dosage: UNK
     Dates: start: 20080501, end: 20090201
  4. ROBAXIN [Concomitant]
     Indication: BACK PAIN
  5. AVELOX [Concomitant]
     Indication: PYREXIA
  6. ATROVENT [Concomitant]
  7. YASMIN [Suspect]
     Dosage: UNK
     Dates: start: 20080501, end: 20090201
  8. FIORINOL [Concomitant]
     Indication: BACK PAIN
  9. AMITRIPTYLINE HCL [Concomitant]
  10. PROVENTIL [Concomitant]
  11. MORPHINE [Concomitant]

REACTIONS (2)
  - PULMONARY EMBOLISM [None]
  - INJURY [None]
